FAERS Safety Report 12758595 (Version 1)
Quarter: 2016Q3

REPORT INFORMATION
  Report Type: Spontaneous
  Country: US (occurrence: US)
  Receive Date: 20160917
  Receipt Date: 20160917
  Transmission Date: 20161109
  Serious: Yes (Disabling, Other)
  Sender: FDA-Public Use
  Company Number: None

PATIENT
  Age: 50 Year
  Sex: Male
  Weight: 135 kg

DRUGS (12)
  1. NORCO [Concomitant]
     Active Substance: ACETAMINOPHEN\HYDROCODONE BITARTRATE
  2. MULTI VITAMIN [Concomitant]
     Active Substance: VITAMINS
  3. VITAMIN B12 [Concomitant]
     Active Substance: CYANOCOBALAMIN
  4. CYMBALTA [Concomitant]
     Active Substance: DULOXETINE HYDROCHLORIDE
  5. CARVEDILOL. [Concomitant]
     Active Substance: CARVEDILOL
  6. LEVOTHYROXINE. [Concomitant]
     Active Substance: LEVOTHYROXINE
  7. VITAMIN D3 [Concomitant]
     Active Substance: CHOLECALCIFEROL
  8. HYOSCYAMINE 0.125 SUBLINGUAL TAB VIRTUAL PHARMACEUTICALS [Suspect]
     Active Substance: HYOSCYAMINE
     Indication: GASTROINTESTINAL DISORDER
     Dosage: OTHER STRENGTH:;OTHER DOSE:;OTHER FREQUENCY:1-2 EVERY4-6 HOURS;OTHER ROUTE:
     Route: 060
     Dates: start: 20160906, end: 20160917
  9. HYOSCYAMINE 0.125 SUBLINGUAL TAB VIRTUAL PHARMACEUTICALS [Suspect]
     Active Substance: HYOSCYAMINE
     Indication: MUSCLE SPASMS
     Dosage: OTHER STRENGTH:;OTHER DOSE:;OTHER FREQUENCY:1-2 EVERY4-6 HOURS;OTHER ROUTE:
     Route: 060
     Dates: start: 20160906, end: 20160917
  10. CANDESARTAN [Concomitant]
     Active Substance: CANDESARTAN
  11. XANAX [Concomitant]
     Active Substance: ALPRAZOLAM
  12. CALCIUM [Concomitant]
     Active Substance: CALCIUM

REACTIONS (6)
  - Vision blurred [None]
  - Photosensitivity reaction [None]
  - Blood pressure increased [None]
  - Dizziness [None]
  - Heart rate increased [None]
  - Asthenia [None]

NARRATIVE: CASE EVENT DATE: 20160906
